FAERS Safety Report 12730931 (Version 1)
Quarter: 2016Q3

REPORT INFORMATION
  Report Type: Spontaneous
  Country: US (occurrence: US)
  Receive Date: 20160909
  Receipt Date: 20160909
  Transmission Date: 20161109
  Serious: Yes (Hospitalization, Disabling)
  Sender: FDA-Public Use
  Company Number: None

PATIENT
  Age: 58 Year
  Sex: Female
  Weight: 113.4 kg

DRUGS (19)
  1. CYCLOBENZAPRINE [Concomitant]
     Active Substance: CYCLOBENZAPRINE
  2. AMBIEN [Concomitant]
     Active Substance: ZOLPIDEM TARTRATE
  3. MULTI VITAMIN [Concomitant]
     Active Substance: VITAMINS
  4. ROCEPHIN [Suspect]
     Active Substance: CEFTRIAXONE SODIUM
     Indication: CYSTITIS
     Route: 030
     Dates: start: 20160729, end: 20160729
  5. BYSTOLIC [Concomitant]
     Active Substance: NEBIVOLOL HYDROCHLORIDE
  6. AMITRIPTYLINE [Concomitant]
     Active Substance: AMITRIPTYLINE
  7. ZONEGRAN [Concomitant]
     Active Substance: ZONISAMIDE
  8. NORCO [Concomitant]
     Active Substance: ACETAMINOPHEN\HYDROCODONE BITARTRATE
  9. TIZANIDINE. [Concomitant]
     Active Substance: TIZANIDINE
  10. PROBIOTIC [Concomitant]
     Active Substance: PROBIOTICS NOS
  11. CALCIUM [Concomitant]
     Active Substance: CALCIUM
  12. ROCEPHIN [Suspect]
     Active Substance: CEFTRIAXONE SODIUM
     Indication: URINARY TRACT INFECTION
     Route: 030
     Dates: start: 20160729, end: 20160729
  13. ZOFRAN [Concomitant]
     Active Substance: ONDANSETRON HYDROCHLORIDE
  14. COLACE [Concomitant]
     Active Substance: DOCUSATE SODIUM
  15. LEVOTHROXINE SODIUM [Concomitant]
     Active Substance: LEVOTHYROXINE SODIUM
  16. CELECOXIB. [Concomitant]
     Active Substance: CELECOXIB
  17. DICLOFENAC [Concomitant]
     Active Substance: DICLOFENAC
  18. GLUCOSAMINE/CHONDROITIN [Concomitant]
  19. ASPRIN [Concomitant]
     Active Substance: ASPIRIN

REACTIONS (2)
  - Speech disorder [None]
  - Drug hypersensitivity [None]

NARRATIVE: CASE EVENT DATE: 20160729
